FAERS Safety Report 11858774 (Version 2)
Quarter: 2016Q1

REPORT INFORMATION
  Report Type: Spontaneous
  Country: US (occurrence: US)
  Receive Date: 20151222
  Receipt Date: 20160107
  Transmission Date: 20160526
  Serious: Yes (Hospitalization)
  Sender: FDA-Public Use
  Company Number: US-AUROBINDO-AUR-APL-2015-11464

PATIENT
  Age: 38 Year
  Sex: Male

DRUGS (4)
  1. LEVETIRACETAM 750MG [Suspect]
     Active Substance: LEVETIRACETAM
     Indication: GENERALISED TONIC-CLONIC SEIZURE
     Dosage: 750 MG, TWO TIMES A DAY
     Route: 065
  2. TOPIRAMATE. [Suspect]
     Active Substance: TOPIRAMATE
     Indication: GENERALISED TONIC-CLONIC SEIZURE
     Route: 065
  3. LEVETIRACETAM 750MG [Suspect]
     Active Substance: LEVETIRACETAM
     Dosage: 1000 MG, 3 TIMES A DAY
     Route: 065
  4. OXCARBAZEPINE. [Concomitant]
     Active Substance: OXCARBAZEPINE
     Indication: PRODUCT USED FOR UNKNOWN INDICATION
     Route: 065

REACTIONS (3)
  - Hypothermia [Recovered/Resolved]
  - Bradycardia [Recovered/Resolved]
  - Autonomic nervous system imbalance [Recovered/Resolved]
